FAERS Safety Report 9265230 (Version 1)
Quarter: 2013Q2

REPORT INFORMATION
  Report Type: Spontaneous
  Country: JP (occurrence: JP)
  Receive Date: 20130501
  Receipt Date: 20130501
  Transmission Date: 20140414
  Serious: Yes (Other)
  Sender: FDA-Public Use
  Company Number: JP-BRISTOL-MYERS SQUIBB COMPANY-18828806

PATIENT
  Age: 7 Decade
  Sex: Male

DRUGS (1)
  1. HYDREA CAPS 500 MG [Suspect]
     Indication: THROMBOCYTOPENIA
     Route: 048

REACTIONS (1)
  - Intra-abdominal haemorrhage [Unknown]
